FAERS Safety Report 16498682 (Version 10)
Quarter: 2023Q2

REPORT INFORMATION
  Report Type: Report from Study
  Country: US (occurrence: US)
  Receive Date: 20190629
  Receipt Date: 20230526
  Transmission Date: 20230722
  Serious: No
  Sender: FDA-Public Use
  Company Number: PHEH2019US026999

PATIENT
  Age: 14 Year
  Sex: Male

DRUGS (2)
  1. GILENYA [Suspect]
     Active Substance: FINGOLIMOD HYDROCHLORIDE
     Indication: Multiple sclerosis
     Dosage: 0.5 MG, QD
     Route: 048
     Dates: start: 20190621
  2. GILENYA [Suspect]
     Active Substance: FINGOLIMOD HYDROCHLORIDE
     Dosage: 0.5 MG, QD
     Route: 048
     Dates: start: 20190718

REACTIONS (12)
  - Gastrointestinal disorder [Unknown]
  - Abdominal discomfort [Not Recovered/Not Resolved]
  - Constipation [Unknown]
  - Decreased immune responsiveness [Unknown]
  - Vitamin D decreased [Unknown]
  - Aphthous ulcer [Unknown]
  - Functional gastrointestinal disorder [Recovering/Resolving]
  - Pyrexia [Recovered/Resolved]
  - Central nervous system lesion [Unknown]
  - Fatigue [Unknown]
  - Diarrhoea [Unknown]
  - Oral herpes [Unknown]

NARRATIVE: CASE EVENT DATE: 20190621
